FAERS Safety Report 10080819 (Version 1)
Quarter: 2014Q2

REPORT INFORMATION
  Report Type: Report from Study
  Country: ES (occurrence: ES)
  Receive Date: 20140416
  Receipt Date: 20140416
  Transmission Date: 20141212
  Serious: Yes (Other)
  Sender: FDA-Public Use
  Company Number: ES-MPIJNJ-2014JNJ002152

PATIENT
  Sex: 0

DRUGS (4)
  1. VELCADE [Suspect]
     Indication: PLASMA CELL MYELOMA
     Route: 065
  2. BENDAMUSTINE [Concomitant]
     Indication: PLASMA CELL MYELOMA
  3. LENALIDOMIDE [Concomitant]
     Indication: PLASMA CELL MYELOMA
  4. THALIDOMIDE [Concomitant]
     Indication: PLASMA CELL MYELOMA

REACTIONS (1)
  - Gastrointestinal toxicity [Unknown]
